FAERS Safety Report 8302975-7 (Version None)
Quarter: 2012Q2

REPORT INFORMATION
  Report Type: 
  Country: None (occurrence: None)
  Receive Date: 20120420
  Receipt Date: 20120414
  Transmission Date: 20120825
  Serious: Yes (Hospitalization, Other)
  Sender: FDA-Public Use
  Company Number: PHEH2012US003738

PATIENT
  Sex: Male

DRUGS (9)
  1. GILENYA [Suspect]
     Indication: MULTIPLE SCLEROSIS
     Dosage: 0.5 MG, QD
     Route: 048
     Dates: start: 20110901, end: 20120321
  2. DIFLUCAN [Concomitant]
  3. VESICARE [Concomitant]
     Indication: BLADDER DISORDER
     Dosage: 10 MG, QD
  4. VESICARE [Concomitant]
     Dosage: 5 MG, BID (TO 5 MG IN THE MORNING AND 5 MG TOWARDS BEDTIME)
  5. NEURONTIN [Concomitant]
     Dosage: 600 MG, TID
  6. FAMPRIDINE [Concomitant]
     Indication: GAIT DISTURBANCE
     Dosage: 10 MG, Q12H
     Dates: start: 20110401
  7. BACLOFEN [Concomitant]
  8. LISINOPRIL [Concomitant]
  9. PROCARDIA [Concomitant]

REACTIONS (25)
  - NYSTAGMUS [None]
  - DRY EYE [None]
  - DYSURIA [None]
  - MUSCLE SPASMS [None]
  - VISION BLURRED [None]
  - EOSINOPHIL COUNT DECREASED [None]
  - OEDEMA PERIPHERAL [None]
  - DRY MOUTH [None]
  - PARAESTHESIA [None]
  - FATIGUE [None]
  - MUSCULAR WEAKNESS [None]
  - TONGUE COATED [None]
  - ERYTHEMA [None]
  - FEELING HOT [None]
  - SQUAMOUS CELL CARCINOMA [None]
  - SENSORY LOSS [None]
  - WHITE BLOOD CELL COUNT DECREASED [None]
  - PAIN IN EXTREMITY [None]
  - ALANINE AMINOTRANSFERASE INCREASED [None]
  - ANION GAP DECREASED [None]
  - LYMPHOCYTE COUNT DECREASED [None]
  - SKIN DISCOLOURATION [None]
  - DEPRESSION [None]
  - BLOOD GLUCOSE INCREASED [None]
  - NEUTROPHIL COUNT INCREASED [None]
